FAERS Safety Report 9926574 (Version 1)
Quarter: 2014Q1

REPORT INFORMATION
  Report Type: Spontaneous
  Country: US (occurrence: US)
  Receive Date: 20140226
  Receipt Date: 20140226
  Transmission Date: 20141002
  Serious: No
  Sender: FDA-Public Use
  Company Number: US-AMGEN-USASP2013074820

PATIENT
  Age: 42 Year
  Sex: Male
  Weight: 86.17 kg

DRUGS (4)
  1. ENBREL [Suspect]
     Indication: PRODUCT USED FOR UNKNOWN INDICATION
     Dosage: 50 MG, QWK
     Route: 058
  2. MULTIVITAMINS, PLAIN [Concomitant]
     Dosage: UNK
  3. ZYRTEC [Concomitant]
     Dosage: 10 MG, UNK
  4. VOLTAREN                           /00372301/ [Concomitant]
     Dosage: 25 MG, UNK

REACTIONS (1)
  - Therapeutic response decreased [Unknown]
